FAERS Safety Report 13291220 (Version 1)
Quarter: 2017Q1

REPORT INFORMATION
  Report Type: Spontaneous
  Country: US (occurrence: US)
  Receive Date: 20170302
  Receipt Date: 20170302
  Transmission Date: 20170428
  Serious: Yes (Hospitalization)
  Sender: FDA-Public Use
  Company Number: None

PATIENT
  Age: 40 Year
  Sex: Male
  Weight: 60.75 kg

DRUGS (2)
  1. FISH OIL OMEGA 3 [Concomitant]
     Active Substance: FISH OIL
  2. RESTASIS [Suspect]
     Active Substance: CYCLOSPORINE
     Indication: DRY EYE
     Dates: start: 20170219, end: 20170302

REACTIONS (1)
  - Seizure [None]

NARRATIVE: CASE EVENT DATE: 20170301
